FAERS Safety Report 6186436-X (Version None)
Quarter: 2009Q2

REPORT INFORMATION
  Report Type: 
  Country: None (occurrence: None)
  Receive Date: 20090511
  Receipt Date: 20090430
  Transmission Date: 20091009
  Serious: Yes (Hospitalization, Other)
  Sender: FDA-Public Use
  Company Number: FI-BAXTER-2009BH007639

PATIENT
  Age: 19 Year
  Sex: Female

DRUGS (1)
  1. GAMMAGARD LIQUID [Suspect]
     Indication: IMMUNODEFICIENCY COMMON VARIABLE
     Route: 065

REACTIONS (6)
  - BACK PAIN [None]
  - CHILLS [None]
  - CONDITION AGGRAVATED [None]
  - FATIGUE [None]
  - HYPERACUSIS [None]
  - INFLUENZA LIKE ILLNESS [None]
